FAERS Safety Report 7631194-2 (Version None)
Quarter: 2011Q3

REPORT INFORMATION
  Report Type: 
  Country: None (occurrence: None)
  Receive Date: 20110715
  Receipt Date: 20091222
  Transmission Date: 20111222
  Serious: Yes (Hospitalization, Other)
  Sender: FDA-Public Use
  Company Number: 2009AP005134

PATIENT
  Age: 72 Year
  Sex: Female

DRUGS (3)
  1. CLONAZEPAM [Suspect]
     Indication: SCHIZOAFFECTIVE DISORDER BIPOLAR TYPE
     Dosage: 0.5 MG;BID; 0.5 MG;QD
  2. DIVALPROEX SODIUM [Suspect]
     Indication: SCHIZOAFFECTIVE DISORDER BIPOLAR TYPE
     Dosage: 900 MG;QD
  3. ZIPRASIDONE HYDROCHLORIDE [Suspect]
     Indication: SCHIZOAFFECTIVE DISORDER BIPOLAR TYPE
     Dosage: 60 MG;BID; 20 MG;BID

REACTIONS (7)
  - DELUSION [None]
  - PARKINSONISM [None]
  - PARANOIA [None]
  - FALL [None]
  - ABNORMAL BEHAVIOUR [None]
  - TREATMENT NONCOMPLIANCE [None]
  - HYPOPHAGIA [None]
